FAERS Safety Report 18298317 (Version 4)
Quarter: 2022Q2

REPORT INFORMATION
  Report Type: Spontaneous
  Country: US (occurrence: US)
  Receive Date: 20200922
  Receipt Date: 20220526
  Transmission Date: 20220721
  Serious: Yes (Other)
  Sender: FDA-Public Use
  Company Number: US-PFIZER INC-2020365127

PATIENT
  Age: 68 Year
  Sex: Female

DRUGS (1)
  1. XELJANZ XR [Suspect]
     Active Substance: TOFACITINIB CITRATE
     Dosage: 11 MG

REACTIONS (7)
  - Deafness [Unknown]
  - Product dose omission issue [Unknown]
  - Pain [Unknown]
  - Hypoacusis [Unknown]
  - Feeling abnormal [Unknown]
  - Stress [Unknown]
  - Peripheral swelling [Unknown]
